FAERS Safety Report 24686748 (Version 1)
Quarter: 2024Q4

REPORT INFORMATION
  Report Type: Spontaneous
  Country: US (occurrence: US)
  Receive Date: 20241202
  Receipt Date: 20241202
  Transmission Date: 20250115
  Serious: Yes (Life-Threatening, Hospitalization, Other)
  Sender: GLENMARK
  Company Number: US-MLMSERVICE-20241115-PI258610-00031-1

PATIENT

DRUGS (1)
  1. OMEPRAZOLE [Suspect]
     Active Substance: OMEPRAZOLE
     Indication: Oesophageal motility disorder
     Dosage: UNK
     Route: 065

REACTIONS (4)
  - Renal tubular injury [Unknown]
  - Acute kidney injury [Unknown]
  - Orthostatic hypotension [Unknown]
  - Tubulointerstitial nephritis [Unknown]
